FAERS Safety Report 11226068 (Version 1)
Quarter: 2015Q2

REPORT INFORMATION
  Report Type: Report from Study
  Country: GB (occurrence: GB)
  Receive Date: 20150629
  Receipt Date: 20150629
  Transmission Date: 20150821
  Serious: Yes (Hospitalization, Other)
  Sender: FDA-Public Use
  Company Number: GB-BAYER-2014-052497

PATIENT
  Age: 61 Year
  Sex: Female

DRUGS (1)
  1. BETAFERON [Suspect]
     Active Substance: INTERFERON BETA-1B
     Indication: MULTIPLE SCLEROSIS
     Dosage: 250 ?G, QOD
     Route: 058

REACTIONS (16)
  - Diabetes mellitus [None]
  - Pain [Not Recovered/Not Resolved]
  - Irritable bowel syndrome [None]
  - Influenza like illness [Not Recovered/Not Resolved]
  - Erythema [None]
  - Peripheral swelling [None]
  - Urinary tract infection [Not Recovered/Not Resolved]
  - Renal impairment [None]
  - Thyroid hormones decreased [None]
  - Secondary progressive multiple sclerosis [None]
  - Chills [Not Recovered/Not Resolved]
  - Hypertension [None]
  - Headache [Not Recovered/Not Resolved]
  - Injection site rash [Not Recovered/Not Resolved]
  - Sensory disturbance [None]
  - Blood sodium decreased [None]

NARRATIVE: CASE EVENT DATE: 2013
